FAERS Safety Report 8012053-2 (Version None)
Quarter: 2011Q4

REPORT INFORMATION
  Report Type: 
  Country: None (occurrence: None)
  Receive Date: 20111228
  Receipt Date: 20111223
  Transmission Date: 20120403
  Serious: Yes (Death)
  Sender: FDA-Public Use
  Company Number: CN-GLAXOSMITHKLINE-R0018325A

PATIENT
  Sex: Male

DRUGS (4)
  1. AZITHROMYCIN [Suspect]
     Indication: MENINGITIS
     Dosage: .1G PER DAY
     Route: 042
     Dates: start: 20110711, end: 20110711
  2. BLINDED VACCINE [Suspect]
     Indication: PROPHYLAXIS
     Route: 048
     Dates: start: 20101203, end: 20101203
  3. CEFUROXIME [Suspect]
     Indication: MENINGITIS
     Dosage: .8G PER DAY
     Route: 042
     Dates: start: 20110711, end: 20110711
  4. RIBAVIRIN [Suspect]
     Indication: MENINGITIS
     Dosage: .1G PER DAY
     Route: 042
     Dates: start: 20110711, end: 20110711

REACTIONS (10)
  - SUDDEN DEATH [None]
  - PULSE ABSENT [None]
  - MYDRIASIS [None]
  - NERVOUS SYSTEM DISORDER [None]
  - MENINGITIS BACTERIAL [None]
  - MULTI-ORGAN FAILURE [None]
  - CYANOSIS [None]
  - MENINGITIS [None]
  - OVERDOSE [None]
  - RESPIRATORY ARREST [None]
